FAERS Safety Report 14507026 (Version 1)
Quarter: 2018Q1

REPORT INFORMATION
  Report Type: Spontaneous
  Country: US (occurrence: US)
  Receive Date: 20180208
  Receipt Date: 20180208
  Transmission Date: 20180509
  Serious: No
  Sender: FDA-Public Use
  Company Number: US-TAIHO ONCOLOGY INC-EU-2018-00121

PATIENT
  Age: 63 Year
  Sex: Female

DRUGS (13)
  1. LONSURF [Suspect]
     Active Substance: TIPIRACIL HYDROCHLORIDE\TRIFLURIDINE
     Route: 048
     Dates: start: 201511, end: 201706
  2. PROCRIT [Concomitant]
     Active Substance: ERYTHROPOIETIN
     Dosage: NI
  3. TRANXENE [Concomitant]
     Active Substance: CLORAZEPATE DIPOTASSIUM
     Dosage: NI
  4. ZOFRAN [Concomitant]
     Active Substance: ONDANSETRON HYDROCHLORIDE
     Dosage: NI
  5. SUCRALFATE. [Concomitant]
     Active Substance: SUCRALFATE
     Dosage: NI
  6. ZARXIO [Concomitant]
     Active Substance: FILGRASTIM-SNDZ
     Dosage: NI
  7. LOMOTIL [Concomitant]
     Active Substance: ATROPINE SULFATE\DIPHENOXYLATE HYDROCHLORIDE
     Dosage: NI
  8. PROTONIX [Concomitant]
     Active Substance: PANTOPRAZOLE SODIUM
     Dosage: NI
  9. CELEXA [Concomitant]
     Active Substance: CITALOPRAM HYDROBROMIDE
     Dosage: NI
  10. OXYCODONE [Concomitant]
     Active Substance: OXYCODONE
     Dosage: NI
  11. NORVASC [Concomitant]
     Active Substance: AMLODIPINE BESYLATE
     Dosage: NI
  12. FENTANYL. [Concomitant]
     Active Substance: FENTANYL
     Dosage: NI
  13. POTASSIUM CHLORIDE. [Concomitant]
     Active Substance: POTASSIUM CHLORIDE
     Dosage: NI

REACTIONS (1)
  - Drug ineffective [Unknown]

NARRATIVE: CASE EVENT DATE: 20170623
